FAERS Safety Report 21537217 (Version 2)
Quarter: 2022Q4

REPORT INFORMATION
  Report Type: Spontaneous
  Country: EG (occurrence: EG)
  Receive Date: 20221101
  Receipt Date: 20221206
  Transmission Date: 20230113
  Serious: Yes (Death, Other)
  Sender: FDA-Public Use
  Company Number: EG-BAYER-2022P019196

PATIENT
  Age: 63 Year
  Sex: Male

DRUGS (1)
  1. NEXAVAR [Suspect]
     Active Substance: SORAFENIB
     Indication: Hepatocellular carcinoma
     Dosage: UNK
     Route: 048
     Dates: start: 20220901, end: 20221006

REACTIONS (13)
  - Hepatocellular carcinoma [Fatal]
  - Tongue eruption [Not Recovered/Not Resolved]
  - Liver function test abnormal [Not Recovered/Not Resolved]
  - Blood bilirubin abnormal [Not Recovered/Not Resolved]
  - Diarrhoea [Not Recovered/Not Resolved]
  - Decreased appetite [Not Recovered/Not Resolved]
  - Fatigue [Not Recovered/Not Resolved]
  - Rash [None]
  - Ocular icterus [None]
  - Ascites [None]
  - Immunodeficiency [None]
  - Lymphocyte count decreased [None]
  - General physical health deterioration [None]

NARRATIVE: CASE EVENT DATE: 20220901
